FAERS Safety Report 4640136-3 (Version None)
Quarter: 2005Q1

REPORT INFORMATION
  Report Type: 
  Country: None (occurrence: None)
  Receive Date: 20050328
  Receipt Date: 20050202
  Transmission Date: 20050727
  Serious: No
  Sender: FDA-Public Use
  Company Number: USA050289863

PATIENT
  Sex: Male

DRUGS (3)
  1. STRATTERA [Suspect]
     Dosage: 80 MG
  2. UROXATRAL [Concomitant]
  3. NEXIUM [Concomitant]

REACTIONS (3)
  - CONSTIPATION [None]
  - MICTURITION DISORDER [None]
  - PENIS DISORDER [None]
